FAERS Safety Report 13758568 (Version 1)
Quarter: 2017Q3

REPORT INFORMATION
  Report Type: Spontaneous
  Country: US (occurrence: US)
  Receive Date: 20170716
  Receipt Date: 20170716
  Transmission Date: 20171127
  Serious: Yes (Congenital Anomaly)
  Sender: FDA-Public Use
  Company Number: None

PATIENT
  Sex: Female
  Weight: 2.25 kg

DRUGS (4)
  1. CADEVOR PULMONARY VALVE [Concomitant]
  2. PULMANORY VALUE SWITCHED WITH AORTIC VALVE [Concomitant]
  3. ONDANSETRON ODT [Suspect]
     Active Substance: ONDANSETRON
     Indication: VOMITING IN PREGNANCY
     Route: 060
     Dates: start: 20070801, end: 20080224
  4. MECHANICAL MITRAL VALVE [Concomitant]

REACTIONS (4)
  - Hypoplastic left heart syndrome [None]
  - Congenital mitral valve incompetence [None]
  - Maternal drugs affecting foetus [None]
  - Congenital aortic valve incompetence [None]
